FAERS Safety Report 10066967 (Version 1)
Quarter: 2014Q2

REPORT INFORMATION
  Report Type: Spontaneous
  Country: UY (occurrence: UY)
  Receive Date: 20140409
  Receipt Date: 20140409
  Transmission Date: 20141212
  Serious: Yes (Other)
  Sender: FDA-Public Use
  Company Number: UY-PFIZER INC-2014095303

PATIENT
  Age: 44 Year
  Sex: Female

DRUGS (4)
  1. RONFASE [Suspect]
     Indication: IN VITRO FERTILISATION
     Dosage: 2 MG, UNK
     Route: 048
     Dates: start: 20140318, end: 20140330
  2. LEVOTHYROXINE SODIUM [Concomitant]
  3. CLONAZEPAM [Concomitant]
  4. SERTRALINE [Concomitant]

REACTIONS (6)
  - Liver disorder [Unknown]
  - Tachycardia [Not Recovered/Not Resolved]
  - Diarrhoea [Not Recovered/Not Resolved]
  - Nausea [Not Recovered/Not Resolved]
  - Affective disorder [Not Recovered/Not Resolved]
  - Insomnia [Not Recovered/Not Resolved]
